FAERS Safety Report 25861974 (Version 2)
Quarter: 2025Q4

REPORT INFORMATION
  Report Type: Report from Study
  Country: BR (occurrence: BR)
  Receive Date: 20250930
  Receipt Date: 20251016
  Transmission Date: 20260118
  Serious: Yes (Other)
  Sender: EMD SERONO INC
  Company Number: BR-Merck Healthcare KGaA-2025048088

PATIENT
  Age: 59 Year
  Sex: Male

DRUGS (1)
  1. INTERFERON BETA-1A [Suspect]
     Active Substance: INTERFERON BETA-1A
     Indication: Multiple sclerosis
     Dates: start: 20250714

REACTIONS (8)
  - Panniculitis [Unknown]
  - Abdominal distension [Recovering/Resolving]
  - Immune system disorder [Recovering/Resolving]
  - Inflammation [Recovering/Resolving]
  - Injection site inflammation [Recovering/Resolving]
  - Injection site pain [Recovering/Resolving]
  - Pruritus [Recovered/Resolved]
  - Liver function test abnormal [Unknown]

NARRATIVE: CASE EVENT DATE: 20250910
